FAERS Safety Report 5681805-6 (Version None)
Quarter: 2008Q1

REPORT INFORMATION
  Report Type: 
  Country: None (occurrence: None)
  Receive Date: 20080327
  Receipt Date: 20070313
  Transmission Date: 20080703
  Serious: No
  Sender: FDA-Public Use
  Company Number: US-BAYER-US-2007-009008

PATIENT
  Age: 41 Year
  Sex: Female
  Weight: 71 kg

DRUGS (2)
  1. MIRENA [Suspect]
     Indication: CONTRACEPTION
     Route: 015
     Dates: start: 20060223
  2. XANAX [Concomitant]

REACTIONS (5)
  - BREAST TENDERNESS [None]
  - METRORRHAGIA [None]
  - PROCEDURAL PAIN [None]
  - VAGINAL ODOUR [None]
  - WEIGHT INCREASED [None]
